FAERS Safety Report 10108762 (Version 1)
Quarter: 2014Q2

REPORT INFORMATION
  Report Type: Spontaneous
  Country: US (occurrence: US)
  Receive Date: 20140425
  Receipt Date: 20140425
  Transmission Date: 20141212
  Serious: No
  Sender: FDA-Public Use
  Company Number: US-009507513-1404USA011365

PATIENT
  Sex: Female

DRUGS (8)
  1. PEGINTRON [Suspect]
     Indication: HEPATITIS C
     Dosage: REDIPEN, FREQUENCY: Q 7 DAYS, ROUTE: INJECTION
     Dates: start: 20130912
  2. REBETOL [Suspect]
     Indication: HEPATITIS C
     Dosage: DOSE: 1200 MG, BID
     Route: 048
     Dates: start: 20130912
  3. TELAPREVIR [Suspect]
     Indication: HEPATITIS C
     Dosage: UNK, QD
     Route: 048
     Dates: start: 20130912
  4. HYDROMORPHONE [Concomitant]
     Dosage: UNK, TID
  5. KLONOPIN [Concomitant]
     Dosage: UNK, BID
  6. BACLOFEN [Concomitant]
     Dosage: UNK, BID
  7. FUROSEMIDE [Concomitant]
     Dosage: UNK, QD
  8. METOPROLOL [Concomitant]

REACTIONS (3)
  - Feeling abnormal [Unknown]
  - Malaise [Unknown]
  - Fatigue [Unknown]
